FAERS Safety Report 6449670-7 (Version None)
Quarter: 2009Q4

REPORT INFORMATION
  Report Type: 
  Country: None (occurrence: None)
  Receive Date: 20091120
  Receipt Date: 20090125
  Transmission Date: 20100525
  Serious: Yes (Other)
  Sender: FDA-Public Use
  Company Number: US-AMGEN-QUU330252

PATIENT
  Sex: Female

DRUGS (3)
  1. ENBREL [Suspect]
     Indication: RHEUMATOID ARTHRITIS
     Route: 058
     Dates: start: 20040301
  2. ENBREL [Suspect]
     Indication: ANKYLOSING SPONDYLITIS
  3. ENBREL [Suspect]
     Indication: PSORIASIS

REACTIONS (10)
  - ARTHROPATHY [None]
  - KYPHOSIS [None]
  - LIPOMA [None]
  - NASOPHARYNGITIS [None]
  - PSORIASIS [None]
  - SKIN DISCOLOURATION [None]
  - SPINAL OSTEOARTHRITIS [None]
  - SQUAMOUS CELL CARCINOMA OF SKIN [None]
  - STAPHYLOCOCCAL INFECTION [None]
  - SURGICAL FAILURE [None]
